FAERS Safety Report 8003759-X (Version None)
Quarter: 2011Q4

REPORT INFORMATION
  Report Type: 
  Country: None (occurrence: None)
  Receive Date: 20111222
  Receipt Date: 20111220
  Transmission Date: 20120403
  Serious: Yes (Other)
  Sender: FDA-Public Use
  Company Number: US-VALEANT-2011VX003746

PATIENT
  Sex: Female

DRUGS (2)
  1. TOPAMAX [Suspect]
     Route: 065
  2. D.H.E. 45 [Suspect]
     Indication: CLUSTER HEADACHE
     Route: 065

REACTIONS (2)
  - CEREBROVASCULAR ACCIDENT [None]
  - HALLUCINATION [None]
